FAERS Safety Report 17140322 (Version 1)
Quarter: 2019Q4

REPORT INFORMATION
  Report Type: Spontaneous
  Country: US (occurrence: US)
  Receive Date: 20191211
  Receipt Date: 20191211
  Transmission Date: 20200122
  Serious: No
  Sender: FDA-Public Use
  Company Number: US-UCBSA-2016014662

PATIENT
  Age: 71 Year
  Sex: Male
  Weight: 84 kg

DRUGS (9)
  1. LEXAPRO [Concomitant]
     Active Substance: ESCITALOPRAM OXALATE
     Indication: DEPRESSION
     Dosage: 5 MG, ONCE DAILY (QD)
     Dates: start: 20160404
  2. ATIVAN [Concomitant]
     Active Substance: LORAZEPAM
     Dosage: 1 MG, 3X/DAY (TID)
     Route: 048
     Dates: start: 20160404
  3. DILANTIN [Concomitant]
     Active Substance: PHENYTOIN
     Indication: SEIZURE
  4. VIMPAT [Suspect]
     Active Substance: LACOSAMIDE
     Indication: GENERALISED TONIC-CLONIC SEIZURE
     Dosage: 25 MG, 2X/DAY (BID)
     Route: 048
     Dates: start: 20160406
  5. ASA [Concomitant]
     Active Substance: ASPIRIN
     Indication: PRODUCT USED FOR UNKNOWN INDICATION
     Dosage: 81 MG, ONCE DAILY (QD)
     Route: 048
  6. KLONOPIN [Concomitant]
     Active Substance: CLONAZEPAM
     Indication: SEIZURE
     Dosage: 1.25 MG, DAILY
     Dates: start: 2014
  7. ATIVAN [Concomitant]
     Active Substance: LORAZEPAM
     Indication: GENERALISED ANXIETY DISORDER
     Dosage: 1MG IN AM, 1MG IN THE EVENING AND 0.75MG MIDDAY
  8. LEXAPRO [Concomitant]
     Active Substance: ESCITALOPRAM OXALATE
     Indication: ANXIETY
  9. LAMICTAL [Concomitant]
     Active Substance: LAMOTRIGINE
     Indication: SEIZURE

REACTIONS (7)
  - Incorrect dose administered [Unknown]
  - Tongue disorder [Not Recovered/Not Resolved]
  - Erythema [Not Recovered/Not Resolved]
  - Erectile dysfunction [Not Recovered/Not Resolved]
  - Periodic limb movement disorder [Not Recovered/Not Resolved]
  - Intentional product misuse [Unknown]
  - Sexual dysfunction [Not Recovered/Not Resolved]

NARRATIVE: CASE EVENT DATE: 201604
